FAERS Safety Report 6249511-7 (Version None)
Quarter: 2009Q2

REPORT INFORMATION
  Report Type: 
  Country: None (occurrence: None)
  Receive Date: 20090629
  Receipt Date: 20090619
  Transmission Date: 20091009
  Serious: Yes (Hospitalization)
  Sender: FDA-Public Use
  Company Number: B0579799A

PATIENT
  Sex: Female

DRUGS (4)
  1. DEROXAT [Suspect]
     Dosage: 20MG PER DAY
     Route: 048
     Dates: start: 20081119
  2. RISPERDAL [Suspect]
     Dosage: 4MG PER DAY
     Route: 048
     Dates: start: 20081001
  3. TRANXENE [Suspect]
     Dosage: 20MG PER DAY
     Route: 048
     Dates: start: 20081119
  4. LEPTICUR [Concomitant]
     Route: 048

REACTIONS (3)
  - DRUG EXPOSURE DURING PREGNANCY [None]
  - PRE-ECLAMPSIA [None]
  - PREGNANCY INDUCED HYPERTENSION [None]
